FAERS Safety Report 8612019-5 (Version None)
Quarter: 2012Q3

REPORT INFORMATION
  Report Type: 
  Country: None (occurrence: None)
  Receive Date: 20120822
  Receipt Date: 20120816
  Transmission Date: 20120928
  Serious: Yes (Hospitalization)
  Sender: FDA-Public Use
  Company Number: FR-GLAXOSMITHKLINE-B0823112A

PATIENT
  Sex: Female

DRUGS (8)
  1. PAROXETINE HCL [Suspect]
     Indication: DEPRESSION
     Dosage: 20MG PER DAY
     Route: 048
     Dates: end: 20120701
  2. FOSAMAX [Concomitant]
  3. ASPIRIN [Concomitant]
     Dosage: 75MG PER DAY
  4. FLECAINIDE ACETATE [Concomitant]
     Dosage: 100MG PER DAY
  5. OROCAL D3 [Concomitant]
     Dosage: 2UNIT PER DAY
  6. TRIVASTAL LP [Concomitant]
     Dosage: 50MG TWICE PER DAY
  7. IRBESARTAN [Suspect]
     Indication: PRODUCT USED FOR UNKNOWN INDICATION
     Dosage: 150MG PER DAY
     Route: 048
     Dates: end: 20120617
  8. NOCTRAN [Concomitant]
     Dosage: 10MG PER DAY

REACTIONS (5)
  - ORTHOSTATIC HYPOTENSION [None]
  - DISORIENTATION [None]
  - BACK PAIN [None]
  - HYPONATRAEMIA [None]
  - FALL [None]
